FAERS Safety Report 5302972-X (Version None)
Quarter: 2007Q2

REPORT INFORMATION
  Report Type: 
  Country: None (occurrence: None)
  Receive Date: 20070413
  Receipt Date: 20070402
  Transmission Date: 20071010
  Serious: Yes (Hospitalization, Other)
  Sender: FDA-Public Use
  Company Number: 2007RR-06718

PATIENT
  Age: 43 Year
  Sex: Female

DRUGS (3)
  1. CIPROFLOXACIN [Suspect]
     Indication: ARTHROPOD BITE
  2. CEPHALEXIN [Concomitant]
  3. AMOXICILLIN + CLAVULANATE POTASSIUM [Concomitant]

REACTIONS (5)
  - CHOREA [None]
  - CONFUSIONAL STATE [None]
  - DYSKINESIA [None]
  - DYSTONIA [None]
  - GRAND MAL CONVULSION [None]
